FAERS Safety Report 13518391 (Version 1)
Quarter: 2017Q2

REPORT INFORMATION
  Report Type: Spontaneous
  Country: US (occurrence: US)
  Receive Date: 20170505
  Receipt Date: 20170505
  Transmission Date: 20170830
  Serious: Yes (Disabling)
  Sender: FDA-Public Use
  Company Number: None

PATIENT
  Age: 38 Year
  Sex: Male
  Weight: 108 kg

DRUGS (4)
  1. ANDROGEL [Suspect]
     Active Substance: TESTOSTERONE
     Indication: ASTHENIA
     Dosage: QUANTITY:2 PUMPS;?
     Route: 061
     Dates: end: 20170319
  2. ANDROGEL [Suspect]
     Active Substance: TESTOSTERONE
     Indication: BLOOD TESTOSTERONE ABNORMAL
     Dosage: QUANTITY:2 PUMPS;?
     Route: 061
     Dates: end: 20170319
  3. MULTI VITAMIN [Concomitant]
     Active Substance: VITAMINS
  4. CLOMID [Concomitant]
     Active Substance: CLOMIPHENE CITRATE

REACTIONS (1)
  - Sperm concentration zero [None]

NARRATIVE: CASE EVENT DATE: 20170315
